FAERS Safety Report 7794281-4 (Version None)
Quarter: 2011Q3

REPORT INFORMATION
  Report Type: 
  Country: None (occurrence: None)
  Receive Date: 20110928
  Receipt Date: 20110927
  Transmission Date: 20111222
  Serious: Yes (Hospitalization, Disabling)
  Sender: FDA-Public Use
  Company Number: SP04607

PATIENT
  Age: 72 Year
  Sex: Female

DRUGS (4)
  1. PERINDOPRIL ERBUMINE [Concomitant]
  2. VISICOL [Suspect]
     Indication: BOWEL PREPARATION
     Dosage: 50 GM, ORAL
     Route: 048
     Dates: start: 20110603, end: 20110603
  3. CARVEDILOL [Concomitant]
  4. AMLODIPINE [Concomitant]

REACTIONS (3)
  - RENAL FAILURE ACUTE [None]
  - FEELING ABNORMAL [None]
  - BLOOD PRESSURE DECREASED [None]
